FAERS Safety Report 10944806 (Version 1)
Quarter: 2015Q1

REPORT INFORMATION
  Report Type: Spontaneous
  Country: IT (occurrence: IT)
  Receive Date: 20150323
  Receipt Date: 20150323
  Transmission Date: 20150721
  Serious: Yes (Other)
  Sender: FDA-Public Use
  Company Number: PHHY2015IT033295

PATIENT
  Age: 38 Year
  Sex: Male

DRUGS (5)
  1. VOLTAREN [Suspect]
     Active Substance: DICLOFENAC SODIUM
     Indication: INFLUENZA
     Dosage: 1 DF, PRN (1 POS. UNIT)
     Route: 048
     Dates: start: 20150302, end: 20150313
  2. BRUFEN//IBUPROFEN [Suspect]
     Active Substance: IBUPROFEN
     Indication: INFLUENZA
     Dosage: 1 DF, PRN (1 POS. UNIT)
     Route: 048
     Dates: start: 20150302, end: 20150313
  3. ALIFLUS [Concomitant]
     Active Substance: FLUTICASONE PROPIONATE\SALMETEROL XINAFOATE
     Indication: PRODUCT USED FOR UNKNOWN INDICATION
     Route: 065
  4. AMOXICILLIN TRIHYDRATE AND CLAVULANATE POTASS [Concomitant]
     Indication: PRODUCT USED FOR UNKNOWN INDICATION
     Route: 065
  5. OKI [Suspect]
     Active Substance: KETOPROFEN LYSINE
     Indication: INFLUENZA
     Dosage: 1 DF, PRN (1 POS. UNIT)
     Route: 048
     Dates: start: 20150302, end: 20150313

REACTIONS (3)
  - Haematemesis [Recovering/Resolving]
  - Mallory-Weiss syndrome [Recovering/Resolving]
  - Gastritis [Recovering/Resolving]

NARRATIVE: CASE EVENT DATE: 20150313
